FAERS Safety Report 4734648-1 (Version None)
Quarter: 2005Q3

REPORT INFORMATION
  Report Type: 
  Country: None (occurrence: None)
  Receive Date: 20050804
  Receipt Date: 20050727
  Transmission Date: 20060218
  Serious: Yes (Other)
  Sender: FDA-Public Use
  Company Number: US-MERCK-0507USA04274

PATIENT
  Age: 54 Year
  Sex: Male
  Weight: 105 kg

DRUGS (7)
  1. VIOXX [Suspect]
     Indication: PAIN
     Route: 048
     Dates: start: 19990101, end: 20030101
  2. ASPIRIN [Concomitant]
     Route: 065
  3. PLENDIL [Concomitant]
     Indication: CARDIAC DISORDER
     Route: 048
     Dates: start: 19970101
  4. DIOVAN [Concomitant]
     Indication: HYPERTENSION
     Route: 065
  5. HYTRIN [Concomitant]
     Indication: HYPERTENSION
     Route: 065
     Dates: start: 19970101, end: 19990101
  6. DYAZIDE [Concomitant]
     Indication: HYPERTENSION
     Route: 065
     Dates: start: 19970101, end: 19990101
  7. ELAVIL [Concomitant]
     Indication: CHRONIC FATIGUE SYNDROME
     Route: 048
     Dates: start: 19970101, end: 19990101

REACTIONS (3)
  - BLOOD CHOLESTEROL INCREASED [None]
  - CEREBROVASCULAR ACCIDENT [None]
  - ULCER HAEMORRHAGE [None]
